FAERS Safety Report 7135638-4 (Version None)
Quarter: 2010Q4

REPORT INFORMATION
  Report Type: 
  Country: None (occurrence: None)
  Receive Date: 20101203
  Receipt Date: 20101122
  Transmission Date: 20110411
  Serious: Yes (Hospitalization, Disabling)
  Sender: FDA-Public Use
  Company Number: GB-WATSON-2010-15424

PATIENT
  Age: 69 Year
  Sex: Female
  Weight: 74 kg

DRUGS (8)
  1. LAMOTRIGINE [Suspect]
     Indication: CONVULSION
     Dosage: 75 MG, UNKNOWN
     Route: 048
     Dates: start: 20100501, end: 20101001
  2. AMOXICILLIN [Concomitant]
     Indication: PRODUCT USED FOR UNKNOWN INDICATION
  3. ASPIRIN [Concomitant]
     Indication: PRODUCT USED FOR UNKNOWN INDICATION
  4. CARBAMAZEPINE [Concomitant]
     Indication: PRODUCT USED FOR UNKNOWN INDICATION
  5. CETRABEN                           /01561901/ [Concomitant]
     Indication: PRODUCT USED FOR UNKNOWN INDICATION
  6. CO-DYDRAMOL [Concomitant]
     Indication: PRODUCT USED FOR UNKNOWN INDICATION
  7. LANSOPRAZOLE [Concomitant]
     Indication: PRODUCT USED FOR UNKNOWN INDICATION
  8. PRAVASTATIN [Concomitant]
     Indication: PRODUCT USED FOR UNKNOWN INDICATION

REACTIONS (1)
  - PARKINSONISM [None]
